FAERS Safety Report 5326949-3 (Version None)
Quarter: 2007Q2

REPORT INFORMATION
  Report Type: 
  Country: None (occurrence: None)
  Receive Date: 20070511
  Receipt Date: 20070501
  Transmission Date: 20071010
  Serious: Yes (Hospitalization)
  Sender: FDA-Public Use
  Company Number: 232962K07USA

PATIENT
  Age: 47 Year
  Sex: Male
  Weight: 83.9154 kg

DRUGS (4)
  1. REBIF [Suspect]
     Indication: MULTIPLE SCLEROSIS
     Dosage: 22 MCG, 3 IN 1 WEEKS, SUBCUTANEOUS
     Route: 058
     Dates: start: 20060901
  2. NEURONTIN [Concomitant]
  3. SOMA [Concomitant]
  4. PROVIGIL [Concomitant]

REACTIONS (2)
  - CHEST PAIN [None]
  - ELECTROCARDIOGRAM ABNORMAL [None]
